FAERS Safety Report 8096132-X (Version None)
Quarter: 2012Q1

REPORT INFORMATION
  Report Type: 
  Country: None (occurrence: None)
  Receive Date: 20120131
  Receipt Date: 20120128
  Transmission Date: 20120608
  Serious: Yes (Hospitalization)
  Sender: FDA-Public Use
  Company Number: US-GLAXOSMITHKLINE-A0963617A

PATIENT

DRUGS (2)
  1. ADVAIR DISKUS 100/50 [Suspect]
     Route: 065
  2. BETA AGONIST (UNSPECIFIED) [Suspect]
     Route: 065

REACTIONS (2)
  - STATUS ASTHMATICUS [None]
  - ASTHMA [None]
